FAERS Safety Report 4819696-5 (Version None)
Quarter: 2005Q4

REPORT INFORMATION
  Report Type: 
  Country: None (occurrence: None)
  Receive Date: 20051102
  Receipt Date: 20051102
  Transmission Date: 20060501
  Serious: Yes (Hospitalization)
  Sender: FDA-Public Use
  Company Number: None

PATIENT
  Age: 81 Year
  Sex: Male
  Weight: 99.4 kg

DRUGS (7)
  1. WARFARIN SODIUM [Suspect]
     Indication: ATRIAL FIBRILLATION
     Dosage: 3 MG Q DAY
     Dates: start: 20041029, end: 20050822
  2. NAPROXEN [Suspect]
     Indication: SHOULDER PAIN
     Dosage: 250 MG BID
     Dates: start: 20040901, end: 20050822
  3. SIMVASTATIN [Concomitant]
  4. ATENOLOL [Concomitant]
  5. SPIRONOLACTONE [Concomitant]
  6. POTASSIUM CHLORIDE [Concomitant]
  7. LASIX [Concomitant]

REACTIONS (4)
  - GASTROINTESTINAL HAEMORRHAGE [None]
  - INTERNATIONAL NORMALISED RATIO INCREASED [None]
  - JEJUNAL ULCER [None]
  - SMALL INTESTINAL HAEMORRHAGE [None]
